FAERS Safety Report 22631044 (Version 9)
Quarter: 2024Q1

REPORT INFORMATION
  Report Type: Report from Study
  Country: US (occurrence: US)
  Receive Date: 20230622
  Receipt Date: 20240304
  Transmission Date: 20240410
  Serious: No
  Sender: FDA-Public Use
  Company Number: US-ACADIA PHARMACEUTICALS INC.-ACA-2023-TRF-002121

PATIENT
  Age: 17 Year
  Sex: Female

DRUGS (8)
  1. DAYBUE [Suspect]
     Active Substance: TROFINETIDE
     Indication: Rett syndrome
     Dosage: 50 MILLILITER, BID
     Route: 048
     Dates: start: 20230527, end: 20230724
  2. DAYBUE [Suspect]
     Active Substance: TROFINETIDE
     Dosage: 50 MILLILITER, BID
     Route: 048
     Dates: start: 20230726
  3. DAYBUE [Suspect]
     Active Substance: TROFINETIDE
     Dosage: 40 MILLILITER, BID
     Route: 048
     Dates: end: 20231126
  4. TRAZODONE [Concomitant]
     Active Substance: TRAZODONE HYDROCHLORIDE
     Dosage: 50 MILLIGRAM
  5. TRAZODONE [Concomitant]
     Active Substance: TRAZODONE HYDROCHLORIDE
     Dosage: 75 MILLIGRAM
  6. MELATONIN [Concomitant]
     Active Substance: MELATONIN
     Dosage: 5 MILLIGRAM
  7. CLARITIN [Concomitant]
     Active Substance: LORATADINE
     Dosage: 10 MILLIGRAM
  8. MIRALAX [Concomitant]
     Active Substance: POLYETHYLENE GLYCOL 3350
     Dosage: 1 CAPFUL

REACTIONS (21)
  - Product use complaint [Recovered/Resolved]
  - Colonoscopy [Recovered/Resolved]
  - Endoscopy [Unknown]
  - Refusal of treatment by patient [Recovered/Resolved]
  - Screaming [Recovered/Resolved]
  - Abdominal distension [Recovered/Resolved]
  - Pallor [Recovered/Resolved]
  - Faeces soft [Recovered/Resolved]
  - Dyskinesia [Not Recovered/Not Resolved]
  - Abdominal distension [Recovered/Resolved]
  - Incorrect dose administered [Not Recovered/Not Resolved]
  - Irritability [Recovered/Resolved]
  - Gastrooesophageal reflux disease [Recovered/Resolved]
  - Hiccups [Not Recovered/Not Resolved]
  - Refusal of treatment by patient [Recovered/Resolved]
  - Constipation [Recovered/Resolved]
  - Product dose omission issue [Unknown]
  - Gastrointestinal tube insertion [Recovered/Resolved]
  - Constipation [Recovered/Resolved]
  - Conjunctivitis [Recovered/Resolved]
  - Decreased appetite [Recovered/Resolved]

NARRATIVE: CASE EVENT DATE: 20230527
